FAERS Safety Report 17398274 (Version 1)
Quarter: 2020Q1

REPORT INFORMATION
  Report Type: Spontaneous
  Country: NL (occurrence: NL)
  Receive Date: 20200210
  Receipt Date: 20200210
  Transmission Date: 20200409
  Serious: Yes (Hospitalization)
  Sender: FDA-Public Use
  Company Number: NL-BAUSCH-BL-2020-002958

PATIENT
  Age: 23 Year
  Sex: Male

DRUGS (9)
  1. DIAZEPAM. [Suspect]
     Active Substance: DIAZEPAM
     Route: 065
  2. PHENIBUT [Suspect]
     Active Substance: DIETARY SUPPLEMENT
     Dosage: GRADUALLY INCREASED THE DOSE OF PHENIBUT, TO MAINTAIN THE EUPHORIC EFFECTS
     Route: 065
  3. DIAZEPAM. [Suspect]
     Active Substance: DIAZEPAM
     Dosage: TAPERING WAS STARTED WITH 2.5 MG PER DAY (ABOUT 20 PERCENT PER WEEK)
     Route: 065
  4. PHENIBUT [Suspect]
     Active Substance: DIETARY SUPPLEMENT
     Indication: INSOMNIA
     Dosage: 11 TO 12 G (WITH A MAXIMUM OF 34.5 G PER DAY)
     Route: 065
  5. DIAZEPAM. [Suspect]
     Active Substance: DIAZEPAM
     Indication: ANXIETY
     Route: 065
  6. PREGABALIN. [Concomitant]
     Active Substance: PREGABALIN
  7. DIAZEPAM. [Suspect]
     Active Substance: DIAZEPAM
     Route: 065
  8. DIAZEPAM. [Suspect]
     Active Substance: DIAZEPAM
     Route: 065
  9. PREGABALIN. [Concomitant]
     Active Substance: PREGABALIN
     Indication: ANXIETY

REACTIONS (2)
  - Drug dependence [Unknown]
  - Withdrawal syndrome [Recovered/Resolved]
